FAERS Safety Report 17434351 (Version 1)
Quarter: 2020Q1

REPORT INFORMATION
  Report Type: Spontaneous
  Country: US (occurrence: US)
  Receive Date: 20200219
  Receipt Date: 20200219
  Transmission Date: 20200409
  Serious: No
  Sender: FDA-Public Use
  Company Number: US-ASTRAZENECA-2020SE13705

PATIENT

DRUGS (2)
  1. IBRANCE [Suspect]
     Active Substance: PALBOCICLIB
     Indication: BREAST CANCER
     Route: 048
     Dates: start: 20191205
  2. FASLODEX [Suspect]
     Active Substance: FULVESTRANT
     Route: 030

REACTIONS (6)
  - Dry skin [Unknown]
  - Oral pain [Recovered/Resolved]
  - Neutrophil count decreased [Recovering/Resolving]
  - Diarrhoea [Unknown]
  - Product dose omission [Unknown]
  - Injection site rash [Unknown]

NARRATIVE: CASE EVENT DATE: 20200102
